FAERS Safety Report 6868638-X (Version None)
Quarter: 2010Q3

REPORT INFORMATION
  Report Type: 
  Country: None (occurrence: None)
  Receive Date: 20100722
  Receipt Date: 20080604
  Transmission Date: 20110219
  Serious: No
  Sender: FDA-Public Use
  Company Number: US-PFIZER INC-2008047978

PATIENT
  Age: 38 Year
  Sex: Male
  Weight: 84.1 kg

DRUGS (1)
  1. CHANTIX [Suspect]
     Indication: SMOKING CESSATION THERAPY

REACTIONS (3)
  - BACK PAIN [None]
  - FLANK PAIN [None]
  - NIGHT SWEATS [None]
